FAERS Safety Report 24693390 (Version 1)
Quarter: 2024Q4

REPORT INFORMATION
  Report Type: Spontaneous
  Country: AU (occurrence: AU)
  Receive Date: 20241203
  Receipt Date: 20241203
  Transmission Date: 20250115
  Serious: Yes (Hospitalization, Other)
  Sender: ALKEM
  Company Number: AU-ALKEM LABORATORIES LIMITED-AU-ALKEM-2024-13624

PATIENT
  Age: 67 Year
  Sex: Male

DRUGS (13)
  1. MYCOPHENOLATE MOFETIL [Suspect]
     Active Substance: MYCOPHENOLATE MOFETIL
     Indication: Immunosuppressant drug therapy
     Dosage: 1000 MILLIGRAM, BID
     Route: 065
  2. MYCOPHENOLATE MOFETIL [Suspect]
     Active Substance: MYCOPHENOLATE MOFETIL
     Dosage: 1000 MILLIGRAM, TID (INCREASED DOSE)
     Route: 065
  3. TACROLIMUS [Interacting]
     Active Substance: TACROLIMUS
     Indication: Immunosuppressant drug therapy
     Dosage: 1 MILLIGRAM, BID
     Route: 065
  4. TACROLIMUS [Interacting]
     Active Substance: TACROLIMUS
     Dosage: 0.2 MILLIGRAM, QD (DOSE REDUCED)
     Route: 065
  5. ITRACONAZOLE [Interacting]
     Active Substance: ITRACONAZOLE
     Indication: Penicillium infection
     Dosage: 400 MILLIGRAM, QD (INDUCTION THERAPY)
     Route: 048
  6. ITRACONAZOLE [Interacting]
     Active Substance: ITRACONAZOLE
     Dosage: 600 MILLIGRAM, QD (INDUCTION THERAPY)
     Route: 048
  7. ITRACONAZOLE [Interacting]
     Active Substance: ITRACONAZOLE
     Dosage: 300 MILLIGRAM, QD (SECONDARY PROPHYLAXIS)
     Route: 048
  8. ITRACONAZOLE [Interacting]
     Active Substance: ITRACONAZOLE
     Dosage: UNK (DOSE INCREASED)
     Route: 065
  9. METHYLPREDNISOLONE [Suspect]
     Active Substance: METHYLPREDNISOLONE
     Indication: Immunosuppressant drug therapy
     Dosage: UNK (PULSE THERAPY)
     Route: 042
  10. METHYLPREDNISOLONE [Suspect]
     Active Substance: METHYLPREDNISOLONE
     Indication: Renal vasculitis
  11. PREDNISOLONE [Suspect]
     Active Substance: PREDNISOLONE
     Indication: Immunosuppressant drug therapy
     Dosage: 10 MILLIGRAM, OD (ONCE DAILY)
     Route: 065
  12. PREDNISOLONE [Suspect]
     Active Substance: PREDNISOLONE
     Dosage: 50 MILLIGRAM, OD (ONCE DAILY)
     Route: 048
  13. PREDNISOLONE [Suspect]
     Active Substance: PREDNISOLONE
     Dosage: UNK, ONCE WEEKLY (TAPERED DOSE)
     Route: 065

REACTIONS (7)
  - Nocardiosis [Recovered/Resolved]
  - Oropharyngeal candidiasis [Recovered/Resolved]
  - Cytomegalovirus colitis [Recovered/Resolved]
  - Septic shock [Recovered/Resolved]
  - Penicillium infection [Recovered/Resolved]
  - Drug level increased [Unknown]
  - Drug interaction [Unknown]
